FAERS Safety Report 11303784 (Version 1)
Quarter: 2015Q3

REPORT INFORMATION
  Report Type: Spontaneous
  Country: IT (occurrence: IT)
  Receive Date: 20150723
  Receipt Date: 20150723
  Transmission Date: 20151125
  Serious: Yes (Other)
  Sender: FDA-Public Use
  Company Number: PHHY2015IT084501

PATIENT
  Age: 37 Year
  Sex: Male
  Weight: 70 kg

DRUGS (1)
  1. MEROPENEM. [Suspect]
     Active Substance: MEROPENEM
     Indication: PLEURISY
     Route: 065

REACTIONS (1)
  - Neurotoxicity [Recovering/Resolving]
